FAERS Safety Report 8990225 (Version 2)
Quarter: 2013Q1

REPORT INFORMATION
  Report Type: Spontaneous
  Country: US (occurrence: US)
  Receive Date: 20121228
  Receipt Date: 20130125
  Transmission Date: 20140127
  Serious: Yes (Other)
  Sender: FDA-Public Use
  Company Number: US-MYLANLABS-2012S1026018

PATIENT
  Age: 32 Year
  Sex: Female

DRUGS (9)
  1. DIVALPROEX SODIUM [Suspect]
     Indication: CONVULSION
     Dosage: ONE TABLET IN AM AND ONE TABLET IN PM
     Route: 048
     Dates: start: 201209
  2. DIVALPROEX SODIUM [Suspect]
     Indication: ABNORMAL BEHAVIOUR
     Dosage: ONE TABLET IN AM AND ONE TABLET IN PM
     Route: 048
     Dates: start: 201209
  3. DIVALPROEX SODIUM [Suspect]
     Indication: CONVULSION
     Dosage: ONE TABLET IN AM AND ONE TABLET IN PM
     Route: 048
     Dates: start: 201209
  4. DIVALPROEX SODIUM [Suspect]
     Indication: ABNORMAL BEHAVIOUR
     Dosage: ONE TABLET IN AM AND ONE TABLET IN PM
     Route: 048
     Dates: start: 201209
  5. METFORMIN [Concomitant]
     Indication: DIABETES MELLITUS
     Route: 048
  6. FLUOXETINE [Concomitant]
     Route: 048
  7. CITALOPRAM [Concomitant]
     Route: 048
  8. NALTREXONE [Concomitant]
  9. ZYPREXA [Concomitant]
     Route: 048

REACTIONS (7)
  - Gait disturbance [Recovered/Resolved]
  - Feeling drunk [Recovered/Resolved]
  - Eye movement disorder [Recovered/Resolved]
  - Presyncope [Recovered/Resolved]
  - Eye movement disorder [None]
  - Product substitution issue [None]
  - Product quality issue [None]
